FAERS Safety Report 8409482-1 (Version None)
Quarter: 2012Q2

REPORT INFORMATION
  Report Type: 
  Country: None (occurrence: None)
  Receive Date: 20120323
  Receipt Date: 20110201
  Transmission Date: 20120825
  Serious: Yes (Other)
  Sender: FDA-Public Use
  Company Number: 163-21880-11010126

PATIENT
  Age: 37 Year
  Sex: Female
  Weight: 55.79 kg

DRUGS (4)
  1. REVLIMID [Suspect]
     Indication: MULTIPLE MYELOMA
     Dosage: 25 MG, DAILY, PO
     Route: 048
     Dates: start: 20101125, end: 20101229
  2. DEXAMETHASONE [Concomitant]
  3. NAPROSYN [Concomitant]
  4. HYDROMORPHONE HCL [Concomitant]

REACTIONS (1)
  - OEDEMA PERIPHERAL [None]
